FAERS Safety Report 11665102 (Version 1)
Quarter: 2015Q4

REPORT INFORMATION
  Report Type: Spontaneous
  Country: US (occurrence: None)
  Receive Date: 20151026
  Receipt Date: 20151026
  Transmission Date: 20160304
  Serious: No
  Sender: FDA-Public Use
  Company Number: None

PATIENT
  Age: 67 Year
  Sex: Male
  Weight: 116.9 kg

DRUGS (1)
  1. AXITINIB [Suspect]
     Active Substance: AXITINIB
     Indication: METASTASES TO LUNG
     Route: 048
     Dates: start: 20140304, end: 20140603

REACTIONS (2)
  - Diarrhoea [None]
  - Toxicity to various agents [None]

NARRATIVE: CASE EVENT DATE: 20140603
